FAERS Safety Report 8313276-5 (Version None)
Quarter: 2012Q2

REPORT INFORMATION
  Report Type: 
  Country: None (occurrence: None)
  Receive Date: 20120426
  Receipt Date: 20120420
  Transmission Date: 20120825
  Serious: Yes (Hospitalization)
  Sender: FDA-Public Use
  Company Number: US-BAYER-2012-039152

PATIENT
  Sex: Female

DRUGS (2)
  1. YAZ [Suspect]
  2. YASMIN [Suspect]

REACTIONS (6)
  - DEEP VEIN THROMBOSIS [None]
  - ANXIETY [None]
  - ANHEDONIA [None]
  - PAIN [None]
  - INJURY [None]
  - PULMONARY EMBOLISM [None]
